FAERS Safety Report 13521118 (Version 4)
Quarter: 2017Q3

REPORT INFORMATION
  Report Type: Spontaneous
  Country: BE (occurrence: BE)
  Receive Date: 20170508
  Receipt Date: 20170723
  Transmission Date: 20171127
  Serious: Yes (Hospitalization, Other)
  Sender: FDA-Public Use
  Company Number: PHHY2017BE063286

PATIENT
  Age: 58 Year
  Sex: Male

DRUGS (9)
  1. COSENTYX [Suspect]
     Active Substance: SECUKINUMAB
     Indication: ANKYLOSING SPONDYLITIS
     Dosage: 2 DF, UNK
     Route: 058
     Dates: start: 20170318, end: 20170325
  2. CRESTOR [Concomitant]
     Active Substance: ROSUVASTATIN CALCIUM
     Indication: PRODUCT USED FOR UNKNOWN INDICATION
     Dosage: 10 MG, QD
     Route: 065
  3. TEVETEN [Concomitant]
     Active Substance: EPROSARTAN MESYLATE
     Indication: PRODUCT USED FOR UNKNOWN INDICATION
     Dosage: 600 MG, QD
     Route: 065
  4. FLAGYL [Concomitant]
     Active Substance: METRONIDAZOLE\METRONIDAZOLE HYDROCHLORIDE
     Indication: BRAIN ABSCESS
     Dosage: UNK
     Route: 065
     Dates: start: 20170411, end: 20170414
  5. AMLOR [Concomitant]
     Active Substance: AMLODIPINE BESYLATE
     Indication: PRODUCT USED FOR UNKNOWN INDICATION
     Dosage: 10 MG, QD
     Route: 065
  6. BISOPROLOL [Concomitant]
     Active Substance: BISOPROLOL
     Indication: PRODUCT USED FOR UNKNOWN INDICATION
     Dosage: 2.5 MG, QD
     Route: 065
  7. AMPICILLINE [Concomitant]
     Indication: BRAIN ABSCESS
     Dosage: UNK
     Route: 065
     Dates: start: 20170411, end: 20170414
  8. CEFTRIAXONE. [Suspect]
     Active Substance: CEFTRIAXONE
     Indication: BRAIN ABSCESS
     Dosage: UNK
     Route: 065
     Dates: start: 20170411, end: 20170419
  9. CELEBREX [Concomitant]
     Active Substance: CELECOXIB
     Indication: ANKYLOSING SPONDYLITIS
     Dosage: 200 MG, BID
     Route: 048
     Dates: start: 20170303, end: 20170404

REACTIONS (9)
  - Dyspnoea [Unknown]
  - Headache [Unknown]
  - Drug-induced liver injury [Recovered/Resolved]
  - Dysphagia [Unknown]
  - Chest discomfort [Unknown]
  - Oedema peripheral [Unknown]
  - Palpitations [Unknown]
  - Dizziness [Unknown]
  - Pyrexia [Unknown]

NARRATIVE: CASE EVENT DATE: 201703
